FAERS Safety Report 24417513 (Version 1)
Quarter: 2024Q4

REPORT INFORMATION
  Report Type: Spontaneous
  Country: US (occurrence: US)
  Receive Date: 20241009
  Receipt Date: 20241009
  Transmission Date: 20250115
  Serious: No
  Sender: BAYER
  Company Number: US-BAYER-2024A143015

PATIENT
  Age: 71 Year
  Sex: Female

DRUGS (1)
  1. CLIMARA PRO [Suspect]
     Active Substance: ESTRADIOL\LEVONORGESTREL
     Indication: Hormone level abnormal
     Dosage: UNK
     Route: 062
     Dates: start: 200412, end: 202312

REACTIONS (1)
  - Endometriosis [Recovered/Resolved]
